FAERS Safety Report 7700244-7 (Version None)
Quarter: 2011Q3

REPORT INFORMATION
  Report Type: 
  Country: None (occurrence: None)
  Receive Date: 20110822
  Receipt Date: 20110810
  Transmission Date: 20111222
  Serious: Yes (Hospitalization)
  Sender: FDA-Public Use
  Company Number: JP-JNJFOC-20110806835

PATIENT
  Age: 52 Year
  Sex: Male
  Weight: 61 kg

DRUGS (12)
  1. PENTASA [Concomitant]
     Indication: COLITIS ULCERATIVE
     Route: 048
     Dates: end: 20110628
  2. ASACOL [Concomitant]
     Indication: COLITIS ULCERATIVE
     Route: 048
     Dates: start: 20110629
  3. REMICADE [Suspect]
     Indication: COLITIS ULCERATIVE
     Dosage: 2 TOTAL INFUSIONS
     Route: 042
     Dates: start: 20110720
  4. PREDNISOLONE [Concomitant]
     Route: 048
     Dates: start: 20110810
  5. PREDNISOLONE [Concomitant]
     Route: 048
     Dates: start: 20110727, end: 20110809
  6. ISONIAZID [Concomitant]
     Indication: ANTIBIOTIC PROPHYLAXIS
     Dates: start: 20110706
  7. OMEPRAZOLE [Concomitant]
     Indication: PROPHYLAXIS
     Route: 048
     Dates: start: 20110713
  8. PREDNISOLONE [Suspect]
     Indication: COLITIS ULCERATIVE
     Route: 048
     Dates: start: 20110713, end: 20110726
  9. PREDONEMA [Concomitant]
     Indication: COLITIS ULCERATIVE
     Route: 054
     Dates: end: 20110719
  10. PREDNISOLONE [Suspect]
     Route: 048
     Dates: start: 20110614, end: 20110628
  11. PREDNISOLONE [Suspect]
     Route: 048
     Dates: start: 20110629, end: 20110712
  12. REMICADE [Suspect]
     Route: 042
     Dates: start: 20110706

REACTIONS (2)
  - PNEUMOCYSTIS JIROVECI PNEUMONIA [None]
  - ANAEMIA [None]
